FAERS Safety Report 6688825-3 (Version None)
Quarter: 2010Q2

REPORT INFORMATION
  Report Type: 
  Country: None (occurrence: None)
  Receive Date: 20100420
  Receipt Date: 20100409
  Transmission Date: 20101027
  Serious: Yes (Hospitalization)
  Sender: FDA-Public Use
  Company Number: GB-BAXTER-2010BH009360

PATIENT
  Age: 58 Year
  Sex: Male
  Weight: 80 kg

DRUGS (7)
  1. HEPARIN SODIUM 1,000 UNITS AND SODIUM CHLORIDE 0.9% [Suspect]
     Indication: THROMBOLYSIS
     Route: 042
     Dates: start: 20100318
  2. ENOXAPARIN SODIUM [Suspect]
     Indication: THROMBOLYSIS
     Route: 058
     Dates: start: 20100318
  3. TENECTEPLASE [Suspect]
     Indication: THROMBOLYSIS
     Route: 042
     Dates: start: 20100318
  4. ASPIRIN [Concomitant]
     Indication: MYOCARDIAL INFARCTION
     Route: 048
     Dates: start: 20100318
  5. CLOPIDOGREL [Concomitant]
     Indication: ACUTE MYOCARDIAL INFARCTION
     Route: 048
     Dates: start: 20100318
  6. RAMIPRIL [Concomitant]
     Indication: HYPERTENSION
     Route: 048
     Dates: start: 20100318
  7. SIMVASTATIN [Concomitant]
     Indication: DRUG USE FOR UNKNOWN INDICATION
     Route: 048
     Dates: start: 20100318

REACTIONS (1)
  - HAEMATEMESIS [None]
